FAERS Safety Report 4842192-6 (Version None)
Quarter: 2005Q4

REPORT INFORMATION
  Report Type: 
  Country: None (occurrence: None)
  Receive Date: 20051201
  Receipt Date: 20051124
  Transmission Date: 20060501
  Serious: Yes (Hospitalization)
  Sender: FDA-Public Use
  Company Number: PHNU2005DE03873

PATIENT
  Sex: Female

DRUGS (3)
  1. TRILEPTAL [Suspect]
     Indication: EPILEPSY
  2. PHENYTOIN [Concomitant]
  3. CALCIUM GLUCONATE [Concomitant]

REACTIONS (3)
  - BLOOD MAGNESIUM DECREASED [None]
  - CONVULSION [None]
  - HYPOCALCAEMIA [None]
